FAERS Safety Report 9245673 (Version 1)
Quarter: 2013Q1

REPORT INFORMATION
  Report Type: Spontaneous
  Country: US (occurrence: None)
  Receive Date: 20121130
  Receipt Date: 20121130
  Transmission Date: 20140127
  Serious: Yes (Hospitalization, Other)
  Sender: FDA-Public Use
  Company Number: 351500

PATIENT
  Age: 42 Year
  Sex: Female
  Weight: 90.7 kg

DRUGS (6)
  1. NOVOLOG [Suspect]
     Indication: TYPE 2 DIABETES MELLITUS
     Dosage: SLIDING SCALE, SUBCUTANEOUS
     Dates: start: 201204
  2. METFORMIN (METFORMIN) [Concomitant]
  3. NADOLOL (NADOLOL) [Concomitant]
  4. POTASSIUM CITRATE (POTASSIUM CITRATE) [Concomitant]
  5. OMEPRAZOLE (OMEPRAZOLE) [Concomitant]
  6. CITALOPRAM (CITALOPRAM) [Concomitant]

REACTIONS (2)
  - Product quality issue [None]
  - Blood glucose increased [None]
